FAERS Safety Report 6335112-9 (Version None)
Quarter: 2009Q3

REPORT INFORMATION
  Report Type: 
  Country: None (occurrence: None)
  Receive Date: 20090828
  Receipt Date: 20090828
  Transmission Date: 20100115
  Serious: Yes (Hospitalization, Disabling, Other)
  Sender: FDA-Public Use
  Company Number: None

PATIENT
  Sex: Male
  Weight: 72.5755 kg

DRUGS (4)
  1. RISPERDAL CONSTA [Suspect]
     Indication: SCHIZOAFFECTIVE DISORDER BIPOLAR TYPE
     Dosage: 50 MG EVERY 2 WEEKS WAS GLUTEAL NOW UPPERARM
     Dates: start: 20050301
  2. DESODINE [Concomitant]
  3. HYDROXYZINE [Concomitant]
  4. CLINDAMYCIN [Concomitant]

REACTIONS (14)
  - ABDOMINAL PAIN UPPER [None]
  - CHOKING [None]
  - DELUSION [None]
  - DERMATITIS [None]
  - GAIT DISTURBANCE [None]
  - GASTROOESOPHAGEAL REFLUX DISEASE [None]
  - HEADACHE [None]
  - LARYNGEAL DISORDER [None]
  - PHARYNGEAL DISORDER [None]
  - PROCTALGIA [None]
  - RASH [None]
  - RECTAL HAEMORRHAGE [None]
  - SKIN DISORDER [None]
  - TARDIVE DYSKINESIA [None]
